FAERS Safety Report 8790628 (Version 1)
Quarter: 2012Q4

REPORT INFORMATION
  Report Type: Spontaneous
  Country: US (occurrence: None)
  Receive Date: 20120912
  Receipt Date: 20120912
  Transmission Date: 20130627
  Serious: Yes (Other)
  Sender: FDA-Public Use
  Company Number: None

PATIENT
  Age: 79 Year
  Sex: Female
  Weight: 57.15 kg

DRUGS (1)
  1. AZITHROMYCIN [Suspect]
     Indication: LUNG CONGESTION
     Dosage: 2 1st day  1 ea.day after (9 days)
     Dates: start: 20120721, end: 20120729

REACTIONS (5)
  - Deafness unilateral [None]
  - Balance disorder [None]
  - Nausea [None]
  - Tinnitus [None]
  - Bradyphrenia [None]
